FAERS Safety Report 5386173-5 (Version None)
Quarter: 2007Q3

REPORT INFORMATION
  Report Type: 
  Country: None (occurrence: None)
  Receive Date: 20070711
  Receipt Date: 20070711
  Transmission Date: 20080115
  Serious: Yes (Life-Threatening)
  Sender: FDA-Public Use
  Company Number: None

PATIENT
  Sex: Female
  Weight: 80 kg

DRUGS (4)
  1. BUTORPHANOL TARTRATE [Suspect]
     Indication: PAIN
     Dosage: 2 MG ONCE IV
     Route: 042
     Dates: start: 20070706
  2. CEFTRIAXONE [Concomitant]
  3. KETOROLAC TROMETHAMINE [Concomitant]
  4. PROTONIX [Concomitant]

REACTIONS (4)
  - CHEST PAIN [None]
  - RESPIRATORY RATE DECREASED [None]
  - RESPIRATORY RATE INCREASED [None]
  - TINNITUS [None]
